FAERS Safety Report 7780176-9 (Version None)
Quarter: 2011Q3

REPORT INFORMATION
  Report Type: 
  Country: None (occurrence: None)
  Receive Date: 20110927
  Receipt Date: 20110927
  Transmission Date: 20111222
  Serious: No
  Sender: FDA-Public Use
  Company Number: None

PATIENT
  Age: 58 Year
  Sex: Female
  Weight: 72.574 kg

DRUGS (1)
  1. ACTONEL [Suspect]
     Indication: BONE LOSS
     Dosage: 30MG
     Route: 048
     Dates: start: 20110922, end: 20110923

REACTIONS (1)
  - HEADACHE [None]
